FAERS Safety Report 10287076 (Version 2)
Quarter: 2015Q3

REPORT INFORMATION
  Report Type: Spontaneous
  Country: US (occurrence: US)
  Receive Date: 20140709
  Receipt Date: 20150810
  Transmission Date: 20151125
  Serious: Yes (Hospitalization, Other)
  Sender: FDA-Public Use
  Company Number: US-GLAXOSMITHKLINE-A1079958A

PATIENT
  Age: 56 Year
  Sex: Female

DRUGS (15)
  1. VICODIN [Concomitant]
     Active Substance: ACETAMINOPHEN\HYDROCODONE BITARTRATE
  2. FLUTICASONE PROPIONATE. [Concomitant]
     Active Substance: FLUTICASONE PROPIONATE
  3. DULOXETINE HYDROCHLORIDE. [Concomitant]
     Active Substance: DULOXETINE HYDROCHLORIDE
  4. CELECOXIB. [Concomitant]
     Active Substance: CELECOXIB
  5. PLAQUENIL [Concomitant]
     Active Substance: HYDROXYCHLOROQUINE SULFATE
  6. PREDNISOLONE. [Concomitant]
     Active Substance: PREDNISOLONE
  7. CELEBREX [Concomitant]
     Active Substance: CELECOXIB
  8. HYDROMORPHONE [Concomitant]
     Active Substance: HYDROMORPHONE
  9. CORTISONE [Concomitant]
     Active Substance: CORTISONE\HYDROCORTISONE
  10. ASMANEX [Concomitant]
     Active Substance: MOMETASONE FUROATE
  11. BENLYSTA [Suspect]
     Active Substance: BELIMUMAB
     Indication: SYSTEMIC LUPUS ERYTHEMATOSUS
     Dosage: 1150 UNK, CYC
     Route: 042
     Dates: start: 20120817, end: 201406
  12. CYMBALTA [Concomitant]
     Active Substance: DULOXETINE HYDROCHLORIDE
  13. PREDNISONE. [Concomitant]
     Active Substance: PREDNISONE
  14. LYRICA [Concomitant]
     Active Substance: PREGABALIN
  15. HYDROXYCHLOROQUINE SULFATE. [Concomitant]
     Active Substance: HYDROXYCHLOROQUINE SULFATE

REACTIONS (12)
  - Spinal operation [Recovering/Resolving]
  - Cervical spinal stenosis [Unknown]
  - Pain [Not Recovered/Not Resolved]
  - Gait disturbance [Not Recovered/Not Resolved]
  - Chondroplasty [Unknown]
  - Musculoskeletal disorder [Not Recovered/Not Resolved]
  - Spinal laminectomy [Recovered/Resolved]
  - Osteonecrosis [Not Recovered/Not Resolved]
  - Immobile [Unknown]
  - Hypoaesthesia [Unknown]
  - Osteoarthritis [Unknown]
  - Weight increased [Not Recovered/Not Resolved]

NARRATIVE: CASE EVENT DATE: 2013
